FAERS Safety Report 21095331 (Version 1)
Quarter: 2022Q3

REPORT INFORMATION
  Report Type: Spontaneous
  Country: US (occurrence: None)
  Receive Date: 20220717
  Receipt Date: 20220717
  Transmission Date: 20221026
  Serious: Yes (Other)
  Sender: FDA-Public Use
  Company Number: None

PATIENT
  Age: 39 Year
  Sex: Female
  Weight: 81.45 kg

DRUGS (13)
  1. BOTOX [Suspect]
     Active Substance: ONABOTULINUMTOXINA
     Indication: Migraine
     Dates: start: 20220706
  2. TOPIRAMATE [Concomitant]
     Active Substance: TOPIRAMATE
  3. LAMOTRIGINE [Concomitant]
     Active Substance: LAMOTRIGINE
  4. OZEMPIC [Concomitant]
     Active Substance: SEMAGLUTIDE
  5. GLIPIZIDE [Concomitant]
     Active Substance: GLIPIZIDE
  6. ATORVASTATIN [Concomitant]
     Active Substance: ATORVASTATIN
  7. LISINOPRIL [Concomitant]
     Active Substance: LISINOPRIL
  8. FENOFIBRATE [Concomitant]
     Active Substance: FENOFIBRATE
  9. CETIRIZINE [Concomitant]
     Active Substance: CETIRIZINE HYDROCHLORIDE
  10. BASAGLAR [Concomitant]
     Active Substance: INSULIN GLARGINE
  11. kwik pen [Concomitant]
  12. Womens multivitamin [Concomitant]
  13. MAGNESIUM [Concomitant]
     Active Substance: MAGNESIUM

REACTIONS (10)
  - Rash [None]
  - Urticaria [None]
  - Hypoaesthesia [None]
  - Hypoaesthesia oral [None]
  - Hypoaesthesia oral [None]
  - Maternal exposure timing unspecified [None]
  - Abortion spontaneous [None]
  - Maternal drugs affecting foetus [None]
  - Back pain [None]
  - Discharge [None]

NARRATIVE: CASE EVENT DATE: 20220709
